FAERS Safety Report 6265323-2 (Version None)
Quarter: 2009Q3

REPORT INFORMATION
  Report Type: 
  Country: None (occurrence: None)
  Receive Date: 20090713
  Receipt Date: 20090709
  Transmission Date: 20100115
  Serious: Yes (Death)
  Sender: FDA-Public Use
  Company Number: JP-ASTRAZENECA-2009AP02178

PATIENT
  Age: 28212 Day
  Sex: Male
  Weight: 51 kg

DRUGS (7)
  1. IRESSA [Suspect]
     Indication: LUNG NEOPLASM MALIGNANT
     Route: 048
     Dates: start: 20081111
  2. MUCOSOLVAN L [Concomitant]
     Indication: EMPHYSEMA
     Route: 048
     Dates: start: 20050401
  3. HOKUNALIN:TAPE [Concomitant]
     Indication: EMPHYSEMA
     Route: 062
     Dates: start: 20050401
  4. MAGNESIUM OXIDE [Concomitant]
     Indication: CONSTIPATION
     Route: 048
     Dates: start: 20050401
  5. ONEALFA [Concomitant]
     Indication: SPINAL COMPRESSION FRACTURE
     Route: 048
     Dates: start: 20090224
  6. CALCIUM LACTATE [Concomitant]
     Indication: SPINAL COMPRESSION FRACTURE
     Route: 048
     Dates: start: 20090224
  7. ELCITONIN [Concomitant]
     Indication: SPINAL COMPRESSION FRACTURE
     Dosage: DOSE UNKNOWN
     Route: 030
     Dates: start: 20090225

REACTIONS (5)
  - NEUTROPENIA [None]
  - PNEUMONIA [None]
  - RESPIRATORY ARREST [None]
  - SEPSIS [None]
  - SHOCK [None]
